FAERS Safety Report 6123477-2 (Version None)
Quarter: 2009Q1

REPORT INFORMATION
  Report Type: 
  Country: None (occurrence: None)
  Receive Date: 20090318
  Receipt Date: 20090316
  Transmission Date: 20090719
  Serious: Yes (Hospitalization, Other)
  Sender: FDA-Public Use
  Company Number: IN-ROXANE LABORATORIES, INC.-2009-RO-00241RO

PATIENT
  Age: 57 Year
  Sex: Male

DRUGS (10)
  1. METHOTREXATE [Suspect]
     Indication: PSORIASIS
  2. METHOTREXATE [Suspect]
     Dosage: 7.5MG
     Route: 048
  3. LEUCOVORIN CALCIUM [Concomitant]
     Indication: BONE MARROW FAILURE
     Dosage: 100MG
     Route: 042
  4. LEUCOVORIN CALCIUM [Concomitant]
     Dosage: 40MG
  5. FILGRASTIM [Concomitant]
     Route: 058
  6. PLATELETS [Concomitant]
  7. ANTIBIOTICS [Concomitant]
  8. ANTIFUNGAL [Concomitant]
  9. POVIDONE IODINE [Concomitant]
     Indication: WOUND TREATMENT
  10. SILVER SULFADIAZINE [Concomitant]

REACTIONS (4)
  - BONE MARROW FAILURE [None]
  - DRUG TOXICITY [None]
  - SKIN ULCER [None]
  - STAPHYLOCOCCAL SEPSIS [None]
